FAERS Safety Report 24970886 (Version 1)
Quarter: 2025Q1

REPORT INFORMATION
  Report Type: Spontaneous
  Country: US (occurrence: None)
  Receive Date: 20250213
  Receipt Date: 20250213
  Transmission Date: 20250409
  Serious: Yes (Hospitalization)
  Sender: FDA-CTU
  Company Number: None

PATIENT
  Age: 56 Year
  Sex: Male
  Weight: 94.5 kg

DRUGS (1)
  1. KISUNLA [Suspect]
     Active Substance: DONANEMAB-AZBT
     Indication: Dementia Alzheimer^s type
     Route: 042
     Dates: start: 20241024

REACTIONS (5)
  - Erythema [None]
  - Flushing [None]
  - Loss of consciousness [None]
  - Confusional state [None]
  - Disorientation [None]

NARRATIVE: CASE EVENT DATE: 20050213
